FAERS Safety Report 9295061 (Version 1)
Quarter: 2013Q2

REPORT INFORMATION
  Report Type: Spontaneous
  Country: US (occurrence: US)
  Receive Date: 20130517
  Receipt Date: 20130517
  Transmission Date: 20140414
  Serious: Yes (Other)
  Sender: FDA-Public Use
  Company Number: US-BAYER-2013-059574

PATIENT
  Age: 24 Year
  Sex: Female

DRUGS (3)
  1. GIANVI [Suspect]
     Indication: ACNE
     Dosage: UNK
     Route: 048
     Dates: start: 201301
  2. GIANVI [Suspect]
     Indication: ABDOMINAL PAIN
  3. YAZ [Suspect]
     Dosage: UNK
     Route: 048

REACTIONS (2)
  - Genital haemorrhage [None]
  - Coital bleeding [Not Recovered/Not Resolved]
